FAERS Safety Report 9199669 (Version 1)
Quarter: 2013Q1

REPORT INFORMATION
  Report Type: Spontaneous
  Country: FR (occurrence: FR)
  Receive Date: 20130329
  Receipt Date: 20130329
  Transmission Date: 20140127
  Serious: Yes (Death, Hospitalization)
  Sender: FDA-Public Use
  Company Number: FR-PFIZER INC-2013099875

PATIENT
  Age: 91 Year
  Sex: Male

DRUGS (12)
  1. ALDACTONE [Suspect]
     Dosage: 12.5 MG, 1X/DAY
     Route: 048
     Dates: start: 20120601
  2. COVERSYL [Suspect]
     Dosage: UNK
     Route: 048
     Dates: end: 20120530
  3. LASILIX [Suspect]
     Dosage: 125 MG, 1X/DAY
     Route: 048
  4. CARDENSIEL [Concomitant]
     Dosage: 2.5 MG, 2X/DAY
     Route: 048
  5. CORDARONE [Concomitant]
     Dosage: 200 MG, 1X/DAY
     Route: 048
  6. COUMADINE [Concomitant]
     Dosage: 4 MG, 1X/DAY
     Route: 048
     Dates: end: 20120601
  7. COUMADINE [Concomitant]
     Dosage: 2 MG, 1X/DAY
     Route: 048
     Dates: start: 20120601
  8. MIANSERIN [Concomitant]
     Indication: DEPRESSION
     Dosage: 30 MG, 1X/DAY
     Route: 048
  9. SERESTA [Concomitant]
     Indication: DEPRESSION
     Dosage: 25 MG, 1X/DAY
     Route: 048
  10. TRANSIPEG [Concomitant]
     Dosage: 2 DF, 1X/DAY
     Route: 048
     Dates: start: 20120601
  11. STILNOX [Concomitant]
     Dosage: 5 MG, 1X/DAY
     Route: 048
  12. KARDEGIC [Concomitant]
     Dosage: 75 MG, 1X/DAY
     Route: 048
     Dates: start: 20120705

REACTIONS (9)
  - Renal failure acute [Fatal]
  - Renal failure [Fatal]
  - Anuria [Fatal]
  - Hypovolaemic shock [Fatal]
  - Overdose [None]
  - International normalised ratio increased [None]
  - Dehydration [None]
  - Hypotension [None]
  - Sluggishness [None]
